FAERS Safety Report 10452883 (Version 3)
Quarter: 2015Q1

REPORT INFORMATION
  Report Type: Spontaneous
  Country: US (occurrence: US)
  Receive Date: 20140915
  Receipt Date: 20150119
  Transmission Date: 20150720
  Serious: Yes (Hospitalization)
  Sender: FDA-Public Use
  Company Number: US-BAYER-2014-137330

PATIENT
  Age: 30 Year
  Sex: Female
  Weight: 54.42 kg

DRUGS (3)
  1. MIRENA [Suspect]
     Active Substance: LEVONORGESTREL
     Indication: CONTRACEPTION
     Dosage: 20 MCG/24HR, CONT
     Dates: start: 200803, end: 20111122
  2. NUVARING [Concomitant]
     Active Substance: ETHINYL ESTRADIOL\ETONOGESTREL
     Dosage: UNK
     Dates: start: 20140226
  3. MIRENA [Suspect]
     Active Substance: LEVONORGESTREL
     Indication: CONTRACEPTION
     Dosage: 20 MCG/24HR, CONT
     Route: 015
     Dates: start: 20130426, end: 20140310

REACTIONS (9)
  - Pain [None]
  - Medical device pain [None]
  - Injury [None]
  - Uterine perforation [None]
  - Device expulsion [None]
  - Headache [None]
  - Medical device discomfort [None]
  - Abdominal pain lower [None]
  - Hypoaesthesia [None]

NARRATIVE: CASE EVENT DATE: 201111
